FAERS Safety Report 9842592 (Version 1)
Quarter: 2014Q1

REPORT INFORMATION
  Report Type: Spontaneous
  Country: US (occurrence: US)
  Receive Date: 20140124
  Receipt Date: 20140124
  Transmission Date: 20141002
  Serious: No
  Sender: FDA-Public Use
  Company Number: US-GILEAD-2011-0048440

PATIENT
  Sex: Female

DRUGS (5)
  1. RANEXA [Suspect]
     Indication: COLLATERAL CIRCULATION
     Dosage: 500 MG, BID
     Route: 048
     Dates: start: 2011
  2. AVAPRO [Concomitant]
  3. NADOLOL [Concomitant]
  4. LASIX                              /00032601/ [Concomitant]
  5. SPIRONOLACTONE [Concomitant]

REACTIONS (3)
  - Palpitations [Unknown]
  - Hypotension [Unknown]
  - Asthenia [Unknown]
